FAERS Safety Report 4656414-8 (Version None)
Quarter: 2005Q2

REPORT INFORMATION
  Report Type: 
  Country: None (occurrence: None)
  Receive Date: 20050504
  Receipt Date: 20050421
  Transmission Date: 20051028
  Serious: No
  Sender: FDA-Public Use
  Company Number: 2005AP02547

PATIENT
  Age: 31 Year
  Sex: Male

DRUGS (5)
  1. PROPOFOL [Suspect]
     Indication: SENSORY DISTURBANCE
     Dosage: 350 MG DAILY IV
     Route: 042
     Dates: start: 20040401, end: 20040401
  2. MIDAZOLAM [Suspect]
     Indication: SENSORY DISTURBANCE
     Dosage: 2 MG ONCE IV
     Route: 042
     Dates: start: 20040401, end: 20040401
  3. MORPHINE SULFATE [Suspect]
     Indication: SENSORY DISTURBANCE
     Dosage: 10 MG ONCE
     Dates: start: 20040401
  4. ATRACURIUM BESYLATE [Suspect]
     Indication: SENSORY DISTURBANCE
     Dosage: 40 MG DAILY IV
     Route: 042
     Dates: start: 20040401, end: 20040401
  5. ANAESTHETIC [Suspect]
     Indication: SENSORY DISTURBANCE

REACTIONS (3)
  - BRONCHOSPASM [None]
  - HEART RATE INCREASED [None]
  - UNEVALUABLE EVENT [None]
